FAERS Safety Report 21265645 (Version 1)
Quarter: 2022Q3

REPORT INFORMATION
  Report Type: Spontaneous
  Country: US (occurrence: None)
  Receive Date: 20220828
  Receipt Date: 20220828
  Transmission Date: 20221026
  Serious: Yes (Other)
  Sender: FDA-Public Use
  Company Number: None

PATIENT
  Age: 24 Year
  Sex: Male
  Weight: 78.75 kg

DRUGS (1)
  1. AMPHETAMINE SULFATE\DEXTROAMPHETAMINE [Suspect]
     Active Substance: AMPHETAMINE SULFATE\DEXTROAMPHETAMINE
     Indication: Narcolepsy
     Dosage: OTHER QUANTITY : 270 TABLET(S);?FREQUENCY : 3 TIMES A DAY;?
     Route: 048
     Dates: start: 20220822, end: 20220827

REACTIONS (11)
  - Product substitution issue [None]
  - Somnolence [None]
  - Condition aggravated [None]
  - Vomiting [None]
  - Depressed level of consciousness [None]
  - Headache [None]
  - Personality change [None]
  - Feeling abnormal [None]
  - Pain [None]
  - Angina pectoris [None]
  - Ocular hyperaemia [None]

NARRATIVE: CASE EVENT DATE: 20220825
